FAERS Safety Report 8786872 (Version 6)
Quarter: 2012Q4

REPORT INFORMATION
  Report Type: 
  Country: US (occurrence: US)
  Receive Date: 20120914
  Receipt Date: 20121030
  Transmission Date: 20130627
  Serious: No
  Sender: FDA-Public Use
  Company Number: US-VERTEX PHARMACEUTICAL INC.-AE-2012-011175

PATIENT
  Sex: Male

DRUGS (6)
  1. VX-950 [Suspect]
     Indication: HEPATITIS C
     Dosage: 750 mg, tid
     Route: 048
     Dates: end: 20121010
  2. PEGASYS [Concomitant]
     Indication: HEPATITIS C
     Dosage: 180 �g weekly
     Route: 058
     Dates: start: 20120705
  3. RIBASPHERE [Concomitant]
     Indication: HEPATITIS C
     Dosage: 400 mg, bid
     Route: 048
     Dates: start: 20120705
  4. CVS DAILY VITAMIN-IRON [Concomitant]
     Route: 048
  5. CVS FISH OIL [Concomitant]
     Route: 048
  6. LOSARTAN + HIDROCLOROTIAZIDA [Concomitant]
     Dosage: 112.5 mg, UNK
     Route: 048

REACTIONS (4)
  - Mood swings [Unknown]
  - Cough [Not Recovered/Not Resolved]
  - Anger [Unknown]
  - Insomnia [Unknown]
